FAERS Safety Report 9420842 (Version 1)
Quarter: 2013Q3

REPORT INFORMATION
  Report Type: Spontaneous
  Country: FR (occurrence: None)
  Receive Date: 20130723
  Receipt Date: 20130723
  Transmission Date: 20140515
  Serious: Yes (Congenital Anomaly)
  Sender: FDA-Public Use
  Company Number: 7223900

PATIENT
  Sex: Male

DRUGS (3)
  1. LEVOTHYROX 75 (LEVOTHYROXINE SODIUM) [Suspect]
     Indication: BASEDOW^S DISEASE
     Dosage: PRODUCT TAKEN BY MOTHER; AT THE BEGINNING OF PREGNANCY - 12 WEEKS OF AMENORRHEA AND 6 D
  2. NEO-MERCAZOLE [Suspect]
     Indication: BASEDOW^S DISEASE
     Dosage: PRODUCT TAKEN BY MOTHER; AT THE BEGINING OF PREGNANCY- UNTIL 12 WKS OF AMENORRHEA
  3. PRORACYL (50 MG, TABLET) (PROPYLTHIOURACILE) [Concomitant]

REACTIONS (5)
  - Hydronephrosis [None]
  - Ureterocele [None]
  - Maternal drugs affecting foetus [None]
  - Caesarean section [None]
  - Pyelocaliectasis [None]
